FAERS Safety Report 24885921 (Version 2)
Quarter: 2025Q1

REPORT INFORMATION
  Report Type: Report from Study
  Country: US (occurrence: US)
  Receive Date: 20250125
  Receipt Date: 20250208
  Transmission Date: 20250409
  Serious: No
  Sender: ABBVIE
  Company Number: US-ABBVIE-6095712

PATIENT
  Sex: Female
  Weight: 46 kg

DRUGS (2)
  1. HUMIRA [Suspect]
     Active Substance: ADALIMUMAB
     Indication: Psoriatic arthropathy
     Route: 058
     Dates: start: 202405
  2. HUMIRA [Suspect]
     Active Substance: ADALIMUMAB
     Route: 058

REACTIONS (7)
  - Hypoaesthesia [Recovering/Resolving]
  - Bronchitis [Recovering/Resolving]
  - Immunodeficiency [Not Recovered/Not Resolved]
  - Nasopharyngitis [Unknown]
  - Arthralgia [Recovering/Resolving]
  - Asthenia [Unknown]
  - Malaise [Recovered/Resolved]

NARRATIVE: CASE EVENT DATE: 20240101
